FAERS Safety Report 24712845 (Version 1)
Quarter: 2024Q4

REPORT INFORMATION
  Report Type: Spontaneous
  Country: CA (occurrence: CA)
  Receive Date: 20241209
  Receipt Date: 20241209
  Transmission Date: 20250115
  Serious: Yes (Hospitalization, Disabling)
  Sender: PFIZER
  Company Number: CA-PFIZER INC-202400316778

PATIENT
  Age: 71 Year
  Sex: Male

DRUGS (9)
  1. CARBOPLATIN [Suspect]
     Active Substance: CARBOPLATIN
     Indication: Oropharyngeal squamous cell carcinoma
     Dosage: 130 MG, WEEKLY
     Route: 042
  2. PACLITAXEL [Suspect]
     Active Substance: PACLITAXEL
     Indication: Oropharyngeal squamous cell carcinoma
     Dosage: 69 MG, WEEKLY
     Route: 042
  3. ATORVASTATIN [Concomitant]
     Active Substance: ATORVASTATIN
  4. DILAUDID [Concomitant]
     Active Substance: HYDROMORPHONE HYDROCHLORIDE
  5. FENTANYL TRANSDERMAL SYSTEM [Concomitant]
     Active Substance: FENTANYL
  6. LIDOCAINE [Concomitant]
     Active Substance: LIDOCAINE
  7. OLANZAPINE [Concomitant]
     Active Substance: OLANZAPINE
  8. TAMSULOSIN [Concomitant]
     Active Substance: TAMSULOSIN
  9. VALSARTAN [Concomitant]
     Active Substance: VALSARTAN

REACTIONS (6)
  - Decreased appetite [Unknown]
  - Dysphagia [Unknown]
  - Gastrointestinal tube insertion [Unknown]
  - Malnutrition [Unknown]
  - Mucosal inflammation [Unknown]
  - Off label use [Unknown]
